FAERS Safety Report 20109037 (Version 2)
Quarter: 2021Q4

REPORT INFORMATION
  Report Type: Spontaneous
  Country: NO (occurrence: NO)
  Receive Date: 20211124
  Receipt Date: 20211210
  Transmission Date: 20220303
  Serious: Yes (Death, Hospitalization, Other)
  Sender: FDA-Public Use
  Company Number: NO-RECORDATI-2021003783

PATIENT
  Sex: Male

DRUGS (6)
  1. MYCOPHENOLATE MOFETIL [Suspect]
     Active Substance: MYCOPHENOLATE MOFETIL
     Indication: Immunosuppression
     Dosage: 2000 MG, QD (1000 MG, BID (MORNING AND EVENING))
  2. TACROLIMUS [Suspect]
     Active Substance: TACROLIMUS
     Indication: Immunosuppression
     Dosage: 4 MG QD (2 MG, BID (MORNING AND EVENING))
  3. PREDNISOLONE [Suspect]
     Active Substance: PREDNISOLONE
     Indication: Drug-induced liver injury
     Dosage: 1 MG/KG/DAY
  4. PREDNISOLONE [Suspect]
     Active Substance: PREDNISOLONE
     Indication: Drug-induced liver injury
  5. METOPROLOL [Suspect]
     Active Substance: METOPROLOL
     Indication: Tachycardia
     Dosage: 5 MILLIGRAM
     Route: 042
  6. METHYLPREDNISOLONE [Suspect]
     Active Substance: METHYLPREDNISOLONE
     Indication: Immunosuppression
     Dosage: 1000 MILLIGRAM, QD
     Route: 042

REACTIONS (20)
  - Death [Fatal]
  - Eye movement disorder [Unknown]
  - Ophthalmoplegia [Unknown]
  - Hypercapnia [Unknown]
  - Apnoea [Unknown]
  - Inflammation [Unknown]
  - Atrioventricular block complete [Unknown]
  - Loss of consciousness [Unknown]
  - Areflexia [Unknown]
  - Dyspnoea [Unknown]
  - Respiratory acidosis [Unknown]
  - Sinus bradycardia [Unknown]
  - Pulmonary oedema [Unknown]
  - Paralysis [Unknown]
  - Trifascicular block [Unknown]
  - Tachypnoea [Unknown]
  - Myocarditis [Unknown]
  - Dizziness [Unknown]
  - Diplopia [Unknown]
  - Off label use [Unknown]
